FAERS Safety Report 15049557 (Version 1)
Quarter: 2018Q3

REPORT INFORMATION
  Report Type: Spontaneous
  Country: CA (occurrence: CA)
  Receive Date: 20180622
  Receipt Date: 20180622
  Transmission Date: 20181010
  Serious: Yes (Death)
  Sender: FDA-Public Use
  Company Number: CA-TEVA-2018-CA-908578

PATIENT
  Age: 63 Year
  Sex: Female
  Weight: 60 kg

DRUGS (10)
  1. FENTANYL. [Suspect]
     Active Substance: FENTANYL
     Route: 065
  2. ACETAMINOPHEN. [Concomitant]
     Active Substance: ACETAMINOPHEN
  3. GABAPENTIN. [Concomitant]
     Active Substance: GABAPENTIN
  4. HYDROMORPHONE [Suspect]
     Active Substance: HYDROMORPHONE
     Route: 065
  5. OXAZEPAM. [Concomitant]
     Active Substance: OXAZEPAM
  6. TEMAZEPAM. [Concomitant]
     Active Substance: TEMAZEPAM
  7. MIRTAZAPINE. [Concomitant]
     Active Substance: MIRTAZAPINE
  8. ZOPICLONE [Concomitant]
     Active Substance: ZOPICLONE
  9. OXYCODONE [Suspect]
     Active Substance: OXYCODONE
     Route: 065
  10. PDP?HYDROCODONE [Suspect]
     Active Substance: HYDROCODONE
     Route: 065

REACTIONS (4)
  - Toxicologic test abnormal [Fatal]
  - Toxicity to various agents [Fatal]
  - Opiates positive [Fatal]
  - Postmortem blood drug level increased [Fatal]
